FAERS Safety Report 8843156 (Version 2)
Quarter: 2012Q4

REPORT INFORMATION
  Report Type: 
  Country: US (occurrence: US)
  Receive Date: 20121016
  Receipt Date: 20121219
  Transmission Date: 20130627
  Serious: Yes (Other)
  Sender: FDA-Public Use
  Company Number: US-PFIZER INC-2012256370

PATIENT
  Sex: Male

DRUGS (1)
  1. CHANTIX [Suspect]
     Indication: SMOKING CESSATION THERAPY
     Dosage: UNK
     Dates: start: 200703

REACTIONS (7)
  - Finger amputation [Unknown]
  - Coagulation factor V level abnormal [Unknown]
  - Thrombosis [Unknown]
  - Gangrene [Unknown]
  - Pain in extremity [Unknown]
  - Depression [Unknown]
  - Loss of employment [Unknown]
